FAERS Safety Report 5443202-8 (Version None)
Quarter: 2007Q3

REPORT INFORMATION
  Report Type: 
  Country: None (occurrence: None)
  Receive Date: 20070830
  Receipt Date: 20070814
  Transmission Date: 20080115
  Serious: Yes (Other)
  Sender: FDA-Public Use
  Company Number: 100#08#2007-03188

PATIENT
  Age: 50 Year
  Sex: Female

DRUGS (5)
  1. AMIODARONE HCL [Suspect]
     Indication: DRUG USE FOR UNKNOWN INDICATION
     Dosage: ORAL
     Route: 048
  2. DIGOXIN [Suspect]
     Indication: DRUG USE FOR UNKNOWN INDICATION
  3. DOCUSATE SODIUM  WITH DANTHRON [Suspect]
     Indication: DRUG USE FOR UNKNOWN INDICATION
  4. VERAPAMIL [Concomitant]
  5. DISOPYRAMIDE [Concomitant]

REACTIONS (4)
  - DRUG HYPERSENSITIVITY [None]
  - EOSINOPHILIA [None]
  - LEUKOCYTOSIS [None]
  - PHOTOSENSITIVITY REACTION [None]
